FAERS Safety Report 10187074 (Version 1)
Quarter: 2014Q2

REPORT INFORMATION
  Report Type: Spontaneous
  Country: US (occurrence: US)
  Receive Date: 20140522
  Receipt Date: 20140522
  Transmission Date: 20141212
  Serious: No
  Sender: FDA-Public Use
  Company Number: US-009507513-1405USA008754

PATIENT
  Age: 59 Year
  Sex: Male

DRUGS (1)
  1. PEGINTRON [Suspect]
     Indication: HEPATITIS C
     Dosage: STRENGTH-120MCG/0.5ML
     Route: 058
     Dates: start: 20140110, end: 20140510

REACTIONS (1)
  - Rash [Unknown]
